FAERS Safety Report 6432211-8 (Version None)
Quarter: 2009Q4

REPORT INFORMATION
  Report Type: 
  Country: None (occurrence: None)
  Receive Date: 20091109
  Receipt Date: 20091027
  Transmission Date: 20100525
  Serious: Yes (Other)
  Sender: FDA-Public Use
  Company Number: US-BAYER-200937749NA

PATIENT
  Age: 34 Year
  Sex: Female

DRUGS (1)
  1. MIRENA [Suspect]
     Indication: CONTRACEPTION
     Dosage: CONTINUOUA
     Route: 015
     Dates: start: 20061126, end: 20090918

REACTIONS (2)
  - ABDOMINAL PAIN LOWER [None]
  - DEVICE DISLOCATION [None]
